FAERS Safety Report 9887447 (Version 1)
Quarter: 2014Q1

REPORT INFORMATION
  Report Type: Spontaneous
  Country: IT (occurrence: None)
  Receive Date: 20140206
  Receipt Date: 20140206
  Transmission Date: 20141002
  Serious: Yes (Other)
  Sender: FDA-Public Use
  Company Number: 2159305

PATIENT
  Age: 69 Year
  Sex: Female
  Weight: 73 kg

DRUGS (2)
  1. PACLITAXEL [Suspect]
     Indication: BREAST CANCER
     Dosage: 10 ML MILLILITRE(S), CYCLICAL, INTRAVENOUS
     Dates: start: 20140116, end: 20140116
  2. HERCEPTIN [Concomitant]

REACTIONS (4)
  - Choking [None]
  - Pruritus generalised [None]
  - Lip oedema [None]
  - Urticaria [None]
